FAERS Safety Report 9238944 (Version 2)
Quarter: 2013Q3

REPORT INFORMATION
  Report Type: Report from Study
  Country: AU (occurrence: AU)
  Receive Date: 20130418
  Receipt Date: 20130805
  Transmission Date: 20140515
  Serious: Yes (Hospitalization)
  Sender: FDA-Public Use
  Company Number: PHHY2013AU035248

PATIENT
  Age: 65 Year
  Sex: Female

DRUGS (1)
  1. SANDOSTATIN LAR [Suspect]
     Indication: CARCINOID SYNDROME
     Dosage: 60 MG
     Route: 030
     Dates: start: 20130410, end: 20130410

REACTIONS (9)
  - Renal impairment [Recovered/Resolved]
  - Hyperhidrosis [Unknown]
  - Hypotension [Unknown]
  - Malaise [Unknown]
  - Chromaturia [Unknown]
  - Arthralgia [Unknown]
  - Flank pain [Unknown]
  - Dehydration [Unknown]
  - Nausea [Unknown]
